FAERS Safety Report 6305649-7 (Version None)
Quarter: 2009Q3

REPORT INFORMATION
  Report Type: 
  Country: None (occurrence: None)
  Receive Date: 20090807
  Receipt Date: 20090723
  Transmission Date: 20100115
  Serious: Yes (Other)
  Sender: FDA-Public Use
  Company Number: US-DEXPHARM-20091101

PATIENT
  Age: 83 Year
  Sex: Female
  Weight: 64.4 kg

DRUGS (4)
  1. OMEPRAZOLE DELAYED RELEASE TABLETS 20 MG [Suspect]
     Indication: DYSPEPSIA
     Dosage: 20 MG ONCE A DAY, ORAL
     Route: 048
     Dates: start: 20090323, end: 20090623
  2. TRICOR [Concomitant]
  3. LISINOPRIL [Concomitant]
  4. LIPITOR [Concomitant]

REACTIONS (7)
  - ABDOMINAL PAIN UPPER [None]
  - ARRHYTHMIA [None]
  - EXTRASYSTOLES [None]
  - FLANK PAIN [None]
  - HOT FLUSH [None]
  - HYPOTHYROIDISM [None]
  - RENAL IMPAIRMENT [None]
